FAERS Safety Report 8285756-2 (Version None)
Quarter: 2012Q2

REPORT INFORMATION
  Report Type: 
  Country: None (occurrence: None)
  Receive Date: 20120413
  Receipt Date: 20120405
  Transmission Date: 20120825
  Serious: Yes (Other)
  Sender: FDA-Public Use
  Company Number: US-ELI_LILLY_AND_COMPANY-US201108005775

PATIENT
  Sex: Female

DRUGS (4)
  1. FORTEO [Suspect]
     Dosage: 20 UG, QD
     Route: 065
  2. FORTEO [Suspect]
     Dosage: 20 UG, QD
     Route: 065
  3. FORTEO [Suspect]
     Dosage: 20 UG, QD
     Route: 065
  4. FORTEO [Suspect]
     Indication: OSTEOPOROSIS
     Dosage: 20 UG, QD
     Route: 065
     Dates: start: 20110701

REACTIONS (12)
  - VISUAL IMPAIRMENT [None]
  - SINUSITIS [None]
  - HEADACHE [None]
  - BACK PAIN [None]
  - FALL [None]
  - CREPITATIONS [None]
  - ALOPECIA [None]
  - FEAR [None]
  - ARTHRITIS [None]
  - LIMB INJURY [None]
  - ADVERSE EVENT [None]
  - UPPER LIMB FRACTURE [None]
